FAERS Safety Report 7899984-9 (Version None)
Quarter: 2011Q4

REPORT INFORMATION
  Report Type: 
  Country: None (occurrence: None)
  Receive Date: 20111107
  Receipt Date: 20111020
  Transmission Date: 20120403
  Serious: No
  Sender: FDA-Public Use
  Company Number: US-AMGEN-USASP2011025845

PATIENT
  Age: 40 Year
  Sex: Female
  Weight: 112.93 kg

DRUGS (1)
  1. ENBREL [Suspect]
     Indication: RHEUMATOID ARTHRITIS
     Dosage: 50 MG, QWK
     Route: 058
     Dates: start: 20110228

REACTIONS (6)
  - COUGH [None]
  - SINUSITIS [None]
  - OROPHARYNGEAL PAIN [None]
  - PHARYNGITIS [None]
  - PAIN [None]
  - UPPER RESPIRATORY TRACT INFECTION [None]
